FAERS Safety Report 10168170 (Version 1)
Quarter: 2014Q2

REPORT INFORMATION
  Report Type: Report from Study
  Country: AR (occurrence: AR)
  Receive Date: 20140512
  Receipt Date: 20140512
  Transmission Date: 20141212
  Serious: Yes (Other)
  Sender: FDA-Public Use
  Company Number: PHHY2014AR057339

PATIENT
  Age: 50 Year
  Sex: Female

DRUGS (1)
  1. LAPENAX [Suspect]
     Dosage: UNK UKN, UNK

REACTIONS (3)
  - Anaemia [Unknown]
  - Haemoglobin decreased [Unknown]
  - Haematocrit decreased [Unknown]
